FAERS Safety Report 18779318 (Version 1)
Quarter: 2021Q1

REPORT INFORMATION
  Report Type: Report from Study
  Country: None (occurrence: ZA)
  Receive Date: 20210125
  Receipt Date: 20210125
  Transmission Date: 20210419
  Serious: Yes (Hospitalization)
  Sender: FDA-Public Use
  Company Number: ZA-ABBVIE-21K-143-3739030-00

PATIENT
  Sex: Male

DRUGS (1)
  1. HUMIRA [Suspect]
     Active Substance: ADALIMUMAB
     Indication: RHEUMATOID ARTHRITIS
     Route: 058
     Dates: start: 20200808, end: 202008

REACTIONS (3)
  - Post procedural complication [Unknown]
  - Hernia [Not Recovered/Not Resolved]
  - Medical device site pain [Unknown]

NARRATIVE: CASE EVENT DATE: 202008
